FAERS Safety Report 22160106 (Version 2)
Quarter: 2023Q2

REPORT INFORMATION
  Report Type: Report from Study
  Country: CA (occurrence: CA)
  Receive Date: 20230331
  Receipt Date: 20230502
  Transmission Date: 20230722
  Serious: Yes (Other)
  Sender: FDA-Public Use
  Company Number: CA-GLAXOSMITHKLINE-CA2023047812

PATIENT

DRUGS (2)
  1. MEPOLIZUMAB [Suspect]
     Active Substance: MEPOLIZUMAB
     Indication: Asthma
     Dosage: 100 MG, Q4W (EVERY 4 WEEKS)
     Route: 058
     Dates: start: 20210226
  2. MEPOLIZUMAB [Suspect]
     Active Substance: MEPOLIZUMAB
     Indication: Asthma
     Dosage: 100 MG, Q4W (EVERY 4 WEEKS)
     Route: 058
     Dates: start: 20210226

REACTIONS (3)
  - Colon cancer [Not Recovered/Not Resolved]
  - Prostate cancer [Not Recovered/Not Resolved]
  - Discouragement [Unknown]
